FAERS Safety Report 9708900 (Version 1)
Quarter: 2013Q4

REPORT INFORMATION
  Report Type: Spontaneous
  Country: RS (occurrence: None)
  Receive Date: 20131122
  Receipt Date: 20131122
  Transmission Date: 20140711
  Serious: Yes (Hospitalization)
  Sender: FDA-Public Use
  Company Number: DIAZ20130010

PATIENT
  Age: 38 Year
  Sex: Female

DRUGS (2)
  1. DIAZEPAM [Suspect]
     Indication: OVERDOSE
  2. VERAPAMIL [Suspect]
     Indication: OVERDOSE
     Dosage: 5.6 GM, UNKNOWN, ORAL
     Route: 048

REACTIONS (5)
  - Overdose [None]
  - Hypotension [None]
  - Bradycardia [None]
  - Anuria [None]
  - Electrocardiogram abnormal [None]
